FAERS Safety Report 7583598-4 (Version None)
Quarter: 2011Q2

REPORT INFORMATION
  Report Type: 
  Country: None (occurrence: None)
  Receive Date: 20110630
  Receipt Date: 20110622
  Transmission Date: 20111010
  Serious: Yes (Disabling, Other)
  Sender: FDA-Public Use
  Company Number: A0931768A

PATIENT
  Age: 80 Year
  Sex: Female

DRUGS (1)
  1. PROMACTA [Suspect]
     Indication: IDIOPATHIC THROMBOCYTOPENIC PURPURA
     Dosage: 25MG PER DAY
     Dates: start: 20100901, end: 20110421

REACTIONS (9)
  - ANAEMIA [None]
  - BONE MARROW RETICULIN FIBROSIS [None]
  - NEUTROPENIA [None]
  - PAIN [None]
  - BONE MARROW FAILURE [None]
  - FATIGUE [None]
  - WEIGHT DECREASED [None]
  - THROMBOCYTOPENIA [None]
  - MYELODYSPLASTIC SYNDROME [None]
